FAERS Safety Report 12202166 (Version 1)
Quarter: 2016Q1

REPORT INFORMATION
  Report Type: Spontaneous
  Country: IN (occurrence: IN)
  Receive Date: 20160323
  Receipt Date: 20160323
  Transmission Date: 20160526
  Serious: Yes (Death, Other)
  Sender: FDA-Public Use
  Company Number: IN-ALVOGEN-2016-ALVOGEN-022953

PATIENT
  Age: 47 Year
  Sex: Male

DRUGS (5)
  1. DOXORUBICIN [Suspect]
     Active Substance: DOXORUBICIN
     Indication: PLASMABLASTIC LYMPHOMA
  2. PREDNISONE. [Suspect]
     Active Substance: PREDNISONE
     Indication: PLASMABLASTIC LYMPHOMA
  3. ETOPOSIDE. [Suspect]
     Active Substance: ETOPOSIDE
     Indication: PLASMABLASTIC LYMPHOMA
  4. CYCLOPHOSPHAMIDE. [Suspect]
     Active Substance: CYCLOPHOSPHAMIDE
     Indication: PLASMABLASTIC LYMPHOMA
  5. VINCRISTINE SULFATE. [Suspect]
     Active Substance: VINCRISTINE SULFATE
     Indication: PLASMABLASTIC LYMPHOMA

REACTIONS (2)
  - Febrile neutropenia [Fatal]
  - Sepsis [Fatal]
